FAERS Safety Report 5682213-4 (Version None)
Quarter: 2008Q1

REPORT INFORMATION
  Report Type: 
  Country: None (occurrence: None)
  Receive Date: 20080327
  Receipt Date: 20080327
  Transmission Date: 20080703
  Serious: No
  Sender: FDA-Public Use
  Company Number: None

PATIENT

DRUGS (2)
  1. HEPARIN [Suspect]
     Indication: ANTICOAGULANT THERAPY
     Dosage: SEE DESCRIPTION IV PUSH
     Route: 042
     Dates: start: 20080320
  2. HEPARIN [Suspect]
     Indication: ANTICOAGULANT THERAPY
     Dosage: SEE DESCRIPTION IV PUSH
     Route: 042
     Dates: start: 20080320

REACTIONS (1)
  - THERAPEUTIC RESPONSE DECREASED [None]
